FAERS Safety Report 4408664-3 (Version None)
Quarter: 2004Q3

REPORT INFORMATION
  Report Type: 
  Country: None (occurrence: None)
  Receive Date: 20040723
  Receipt Date: 20040713
  Transmission Date: 20050211
  Serious: Yes (Other)
  Sender: FDA-Public Use
  Company Number: K200401034

PATIENT
  Age: 71 Year
  Sex: Female

DRUGS (6)
  1. ALTACE [Suspect]
     Indication: MYOCARDIAL ISCHAEMIA
     Dosage: 2.5 MG, QD; 10 MG, QD
     Dates: start: 20000101
  2. ALTACE [Suspect]
     Indication: MYOCARDIAL ISCHAEMIA
     Dosage: 2.5 MG, QD; 10 MG, QD
     Dates: start: 20040426
  3. SINEMET [Suspect]
     Indication: PARKINSONISM
     Dosage: BID, ORAL
     Route: 048
     Dates: start: 19840101
  4. ASPIRIN [Concomitant]
  5. ORPHENADRINE CITRATE [Concomitant]
  6. ATENOLOL [Concomitant]

REACTIONS (1)
  - DYSKINESIA [None]
